FAERS Safety Report 9900439 (Version 2)
Quarter: 2014Q1

REPORT INFORMATION
  Report Type: Report from Study
  Country: US (occurrence: US)
  Receive Date: 20140217
  Receipt Date: 20140302
  Transmission Date: 20141002
  Serious: Yes (Other)
  Sender: FDA-Public Use
  Company Number: US-ROCHE-1344625

PATIENT
  Sex: Female
  Weight: 69.92 kg

DRUGS (7)
  1. RITUXAN [Suspect]
     Indication: PRODUCT USED FOR UNKNOWN INDICATION
     Route: 042
     Dates: start: 20140203
  2. NEULASTA [Concomitant]
  3. PERCOCET [Concomitant]
     Indication: PAIN
  4. ASPIRIN [Concomitant]
  5. TYLENOL [Concomitant]
  6. MAXALT [Concomitant]
  7. XANAX [Concomitant]
     Indication: ANXIETY

REACTIONS (10)
  - Chest discomfort [Unknown]
  - Dyspnoea [Unknown]
  - Immobile [Unknown]
  - Panic reaction [Unknown]
  - Nervousness [Unknown]
  - Feeling abnormal [Unknown]
  - Nausea [Unknown]
  - Confusional state [Unknown]
  - Headache [Unknown]
  - Malaise [Unknown]
